FAERS Safety Report 5628730-4 (Version None)
Quarter: 2008Q1

REPORT INFORMATION
  Report Type: 
  Country: None (occurrence: None)
  Receive Date: 20080215
  Receipt Date: 20080215
  Transmission Date: 20080703
  Serious: Yes (Other)
  Sender: FDA-Public Use
  Company Number: None

PATIENT
  Age: 42 Year
  Sex: Female
  Weight: 81.6475 kg

DRUGS (1)
  1. MICONAZOLE NITRATE [Suspect]
     Indication: FUNGAL INFECTION
     Dosage: 1 TUBE, 200MG ONCE DAILY VAG
     Route: 067
     Dates: start: 20080213, end: 20080213

REACTIONS (2)
  - APPLICATION SITE IRRITATION [None]
  - APPLICATION SITE PRURITUS [None]
